FAERS Safety Report 6905284-3 (Version None)
Quarter: 2010Q3

REPORT INFORMATION
  Report Type: 
  Country: None (occurrence: None)
  Receive Date: 20100730
  Receipt Date: 20100717
  Transmission Date: 20110219
  Serious: Yes (Hospitalization, Other)
  Sender: FDA-Public Use
  Company Number: 2010AP001487

PATIENT
  Age: 46 Year
  Sex: Female

DRUGS (4)
  1. SERTRALINE HYDROCHLORIDE [Suspect]
     Indication: DEPRESSION
     Dosage: 50 MG;QD
  2. FENTANYL CITRATE [Suspect]
     Dosage: 50 UG;IV
     Route: 042
  3. MIDAZOLAM HCL [Concomitant]
  4. PROPOFOL [Concomitant]

REACTIONS (15)
  - AGGRESSION [None]
  - AGITATION POSTOPERATIVE [None]
  - ALANINE AMINOTRANSFERASE INCREASED [None]
  - ASPARTATE AMINOTRANSFERASE INCREASED [None]
  - BLOOD CREATINE PHOSPHOKINASE INCREASED [None]
  - CLONUS [None]
  - CONFUSION POSTOPERATIVE [None]
  - DRUG INTERACTION [None]
  - HYPERHIDROSIS [None]
  - MUSCLE RIGIDITY [None]
  - OXYGEN SATURATION DECREASED [None]
  - PO2 INCREASED [None]
  - POST PROCEDURAL COMPLICATION [None]
  - SEROTONIN SYNDROME [None]
  - SOMNOLENCE [None]
